FAERS Safety Report 15795244 (Version 1)
Quarter: 2019Q1

REPORT INFORMATION
  Report Type: Spontaneous
  Country: US (occurrence: US)
  Receive Date: 20190107
  Receipt Date: 20190107
  Transmission Date: 20190417
  Serious: No
  Sender: FDA-Public Use
  Company Number: None

PATIENT
  Age: 35 Year
  Sex: Male
  Weight: 50.85 kg

DRUGS (12)
  1. CAL+MAG+ZINC+D3 [Concomitant]
  2. SUBOXONE [Suspect]
     Active Substance: BUPRENORPHINE HYDROCHLORIDE\NALOXONE HYDROCHLORIDE
     Indication: FRACTURE NONUNION
     Dosage: ?          QUANTITY:1 SUBLINGUAL FILM;?
     Route: 048
     Dates: start: 20190104, end: 20190107
  3. SUBOXONE [Suspect]
     Active Substance: BUPRENORPHINE HYDROCHLORIDE\NALOXONE HYDROCHLORIDE
     Indication: CERVICAL RADICULOPATHY
     Dosage: ?          QUANTITY:1 SUBLINGUAL FILM;?
     Route: 048
     Dates: start: 20190104, end: 20190107
  4. LAMISIL [Concomitant]
     Active Substance: TERBINAFINE HYDROCHLORIDE
  5. FENTANYL. [Concomitant]
     Active Substance: FENTANYL
  6. PERCOCET [Concomitant]
     Active Substance: ACETAMINOPHEN\OXYCODONE HYDROCHLORIDE
  7. MULTIVITAMIN [Concomitant]
     Active Substance: VITAMINS
  8. VITAMIN C [Concomitant]
     Active Substance: ASCORBIC ACID
  9. SUPER B COMPLEX [Concomitant]
     Active Substance: CYANOCOBALAMIN\DEXPANTHENOL\NIACINAMIDE\PYRIDOXINE HYDROCHLORIDE\RIBOFLAVIN 5^-PHOSPHATE SODIUM\THIAMINE HYDROCHLORIDE\VITAMIN B COMPLEX
  10. SUBOXONE [Suspect]
     Active Substance: BUPRENORPHINE HYDROCHLORIDE\NALOXONE HYDROCHLORIDE
     Indication: PAIN
     Dosage: ?          QUANTITY:1 SUBLINGUAL FILM;?
     Route: 048
     Dates: start: 20190104, end: 20190107
  11. KLONOPIN [Concomitant]
     Active Substance: CLONAZEPAM
  12. TESTOSTERONE. [Concomitant]
     Active Substance: TESTOSTERONE

REACTIONS (6)
  - Inadequate analgesia [None]
  - Vomiting [None]
  - Drug ineffective [None]
  - Feeling abnormal [None]
  - Hypertension [None]
  - Heart rate increased [None]

NARRATIVE: CASE EVENT DATE: 20190104
